FAERS Safety Report 8849186 (Version 2)
Quarter: 2013Q1

REPORT INFORMATION
  Report Type: Spontaneous
  Country: US (occurrence: None)
  Receive Date: 20121019
  Receipt Date: 20121024
  Transmission Date: 20140127
  Serious: Yes (Death)
  Sender: FDA-Public Use
  Company Number: None

PATIENT
  Sex: Female

DRUGS (5)
  1. TRIAMCINOLONE [Suspect]
     Indication: SPINAL OSTEOARTHRITIS
     Dosage: 40MG ONCE FACET INJECTION
  2. SYNTHROID [Concomitant]
  3. ASPIRIN [Concomitant]
  4. PLAVIX [Concomitant]
  5. ATORVASTATIN [Concomitant]

REACTIONS (2)
  - Back pain [None]
  - Cerebrovascular accident [None]
